FAERS Safety Report 6333044-3 (Version None)
Quarter: 2009Q3

REPORT INFORMATION
  Report Type: 
  Country: None (occurrence: None)
  Receive Date: 20090828
  Receipt Date: 20090826
  Transmission Date: 20100115
  Serious: Yes (Life-Threatening)
  Sender: FDA-Public Use
  Company Number: JP-SANOFI-SYNTHELABO-A01200908870

PATIENT
  Sex: Male

DRUGS (5)
  1. IRINOTECAN HCL [Concomitant]
     Dosage: UNK
  2. AVASTIN [Suspect]
     Dosage: UNK
     Route: 041
  3. CALCIUM LEVOFOLINATE [Suspect]
     Dosage: UNK
     Route: 041
  4. FLUOROURACIL [Suspect]
     Dosage: UNK
     Route: 040
  5. ELPLAT [Suspect]
     Dosage: UNK
     Route: 041

REACTIONS (1)
  - SHOCK [None]
